FAERS Safety Report 23660518 (Version 2)
Quarter: 2024Q2

REPORT INFORMATION
  Report Type: Report from Study
  Country: US (occurrence: US)
  Receive Date: 20240322
  Receipt Date: 20240408
  Transmission Date: 20240716
  Serious: Yes (Hospitalization)
  Sender: FDA-Public Use
  Company Number: US-JAZZ PHARMACEUTICALS-2024-US-004841

PATIENT
  Sex: Female

DRUGS (2)
  1. EPIDIOLEX [Suspect]
     Active Substance: CANNABIDIOL
     Indication: Epilepsy
     Dosage: 0.5 MILLILITER, BID
     Route: 048
     Dates: start: 202402
  2. EPIDIOLEX [Suspect]
     Active Substance: CANNABIDIOL
     Dosage: 0.5 MILLILITER, BID
     Route: 048

REACTIONS (2)
  - Hospitalisation [Unknown]
  - Product use in unapproved indication [Unknown]
